FAERS Safety Report 4518058-8 (Version None)
Quarter: 2004Q4

REPORT INFORMATION
  Report Type: 
  Country: None (occurrence: None)
  Receive Date: 20041203
  Receipt Date: 20041130
  Transmission Date: 20050328
  Serious: Yes (Hospitalization)
  Sender: FDA-Public Use
  Company Number: DE_041014561

PATIENT
  Age: 74 Year
  Sex: Female
  Weight: 56.8 kg

DRUGS (9)
  1. VINORELBINE [Suspect]
     Indication: NON-SMALL CELL LUNG CANCER
     Dosage: 25MGM2 CYCLIC
     Route: 042
     Dates: start: 20040823
  2. GEMZAR [Suspect]
     Indication: NON-SMALL CELL LUNG CANCER
     Dosage: 1000MGM2 CYCLIC
     Route: 042
     Dates: start: 20040823
  3. CARBOPLATIN [Suspect]
     Indication: NON-SMALL CELL LUNG CANCER
     Route: 042
     Dates: start: 20040823
  4. PANTOZOL [Concomitant]
  5. VOMEX [Concomitant]
  6. IBUPROFEN [Concomitant]
  7. MORPHINE SULFATE [Concomitant]
  8. BIFITERAL [Concomitant]
  9. NEUROCIL [Concomitant]

REACTIONS (6)
  - ABDOMINAL PAIN [None]
  - DUODENAL ULCER PERFORATION [None]
  - GASTRITIS [None]
  - NAUSEA [None]
  - PERITONITIS [None]
  - VOMITING [None]
